FAERS Safety Report 8042548-7 (Version None)
Quarter: 2012Q1

REPORT INFORMATION
  Report Type: 
  Country: None (occurrence: None)
  Receive Date: 20120112
  Receipt Date: 20120106
  Transmission Date: 20120608
  Serious: Yes (Hospitalization)
  Sender: FDA-Public Use
  Company Number: FR-PFIZER INC-2012004056

PATIENT
  Age: 34 Year
  Sex: Female

DRUGS (9)
  1. CLINDAMYCIN HCL [Suspect]
     Dosage: 1200 MG, 2X/DAY
     Route: 042
     Dates: start: 20110205, end: 20110211
  2. NOREPINEPHRINE BITARTRATE [Concomitant]
     Indication: SEPTIC SHOCK
     Dosage: UNK
     Dates: start: 20110203
  3. ROCEPHIN [Suspect]
     Dosage: 2 G, 1X/DAY
     Route: 042
     Dates: start: 20110201, end: 20110211
  4. PYOSTACINE [Suspect]
     Dosage: 1 G, 3X/DAY
     Route: 048
     Dates: start: 20110203, end: 20110205
  5. PLAQUENIL [Concomitant]
     Dosage: UNK
     Dates: end: 20110201
  6. CIPROFLOXACIN [Suspect]
     Dosage: 200 MG, 2X/DAY
     Route: 042
     Dates: start: 20110203, end: 20110205
  7. PLAQUENIL [Concomitant]
     Dosage: UNK
     Dates: start: 20110304
  8. VANCOMYCIN [Suspect]
     Dosage: UNK
     Route: 042
     Dates: start: 20110205, end: 20110211
  9. HYDROCORTISONE [Concomitant]
     Route: 042

REACTIONS (3)
  - PANCREATITIS ACUTE [None]
  - SKIN TEST NEGATIVE [None]
  - DRUG RASH WITH EOSINOPHILIA AND SYSTEMIC SYMPTOMS [None]
